FAERS Safety Report 16089813 (Version 1)
Quarter: 2019Q1

REPORT INFORMATION
  Report Type: Spontaneous
  Country: IT (occurrence: IT)
  Receive Date: 20190319
  Receipt Date: 20190319
  Transmission Date: 20190418
  Serious: Yes (Other)
  Sender: FDA-Public Use
  Company Number: IT-PFIZER INC-2019113478

PATIENT
  Age: 58 Year
  Sex: Female

DRUGS (3)
  1. BRIVUDINE [Suspect]
     Active Substance: BRIVUDINE
     Indication: HERPES ZOSTER
     Dosage: 125 MG, 1X/DAY
     Route: 048
     Dates: start: 20190218
  2. LYRICA [Suspect]
     Active Substance: PREGABALIN
     Indication: HERPES ZOSTER
     Dosage: 75 MG, 1X/DAY
     Route: 048
  3. TACHIDOL [Suspect]
     Active Substance: ACETAMINOPHEN\CODEINE PHOSPHATE
     Indication: HERPES ZOSTER
     Dosage: 530 MG, 1X/DAY
     Route: 048
     Dates: start: 20190218

REACTIONS (2)
  - Eye pain [Recovering/Resolving]
  - Eyelid injury [Recovering/Resolving]

NARRATIVE: CASE EVENT DATE: 20190219
